FAERS Safety Report 4570147-8 (Version None)
Quarter: 2005Q1

REPORT INFORMATION
  Report Type: 
  Country: None (occurrence: None)
  Receive Date: 20050131
  Receipt Date: 20050121
  Transmission Date: 20050727
  Serious: Yes (Death, Hospitalization)
  Sender: FDA-Public Use
  Company Number: 163-20785-04090565

PATIENT
  Age: 68 Year
  Sex: Female

DRUGS (2)
  1. THALOMID [Suspect]
     Indication: MULTIPLE MYELOMA
     Dosage: 200 MG DAILY, ORAL
     Route: 048
     Dates: start: 20040726, end: 20040825
  2. VELCADE [Suspect]
     Indication: MULTIPLE MYELOMA

REACTIONS (15)
  - CALCIUM METABOLISM DISORDER [None]
  - CARDIAC FAILURE CONGESTIVE [None]
  - CARDIO-RESPIRATORY ARREST [None]
  - CEREBRAL INFARCTION [None]
  - CONDITION AGGRAVATED [None]
  - DIABETES MELLITUS [None]
  - HYPOGLYCAEMIA [None]
  - HYPOTENSION [None]
  - HYPOXIC ENCEPHALOPATHY [None]
  - MYOCARDIAL INFARCTION [None]
  - NEUROPATHY [None]
  - NEUROPATHY PERIPHERAL [None]
  - PEPTIC ULCER [None]
  - PULMONARY HYPERTENSION [None]
  - SEPSIS [None]
